FAERS Safety Report 18349950 (Version 1)
Quarter: 2020Q4

REPORT INFORMATION
  Report Type: Spontaneous
  Country: LV (occurrence: LV)
  Receive Date: 20201006
  Receipt Date: 20201006
  Transmission Date: 20210114
  Serious: Yes (Other)
  Sender: FDA-Public Use
  Company Number: LV-TEVA-2020-LV-1835239

PATIENT
  Age: 81 Year
  Sex: Male

DRUGS (1)
  1. DUTASTERIDE TEVA 0,5 MG MIKSTAS KAPSULAS [Suspect]
     Active Substance: DUTASTERIDE
     Indication: BENIGN PROSTATIC HYPERPLASIA
     Dosage: 0.5 MG
     Route: 048
     Dates: start: 20200415, end: 20200914

REACTIONS (2)
  - Drug ineffective [Recovering/Resolving]
  - Pollakiuria [Recovering/Resolving]

NARRATIVE: CASE EVENT DATE: 20200415
